FAERS Safety Report 19585548 (Version 1)
Quarter: 2021Q3

REPORT INFORMATION
  Report Type: Other
  Country: US (occurrence: US)
  Receive Date: 20210720
  Receipt Date: 20210720
  Transmission Date: 20211014
  Serious: Yes (Hospitalization)
  Sender: FDA-Public Use
  Company Number: US-ROCHE-2740565

PATIENT
  Age: 70 Year
  Sex: Male

DRUGS (2)
  1. ATEZOLIZUMAB. [Suspect]
     Active Substance: ATEZOLIZUMAB
     Indication: SMALL CELL LUNG CANCER
     Route: 041
  2. CARBOPLATIN;ETOPOSIDE [Concomitant]
     Indication: SMALL CELL LUNG CANCER
     Dosage: 4 CYCLES
     Route: 065

REACTIONS (1)
  - Hepatitis [Unknown]
